FAERS Safety Report 12713889 (Version 1)
Quarter: 2016Q3

REPORT INFORMATION
  Report Type: Spontaneous
  Country: GB (occurrence: GB)
  Receive Date: 20160905
  Receipt Date: 20160905
  Transmission Date: 20161109
  Serious: Yes (Other)
  Sender: FDA-Public Use
  Company Number: GB-AMGEN-GBRSP2016118435

PATIENT
  Age: 36 Year
  Sex: Female

DRUGS (3)
  1. ENBREL [Suspect]
     Active Substance: ETANERCEPT
     Indication: RHEUMATOID ARTHRITIS
     Dosage: 50 MG, WEEKLY
     Route: 058
     Dates: start: 20160505
  2. METHOTREXATE. [Concomitant]
     Active Substance: METHOTREXATE
     Dosage: 25 MG, WEEKLY (ONCE WEEKLY TUESDAY)
  3. ENBREL [Suspect]
     Active Substance: ETANERCEPT
     Dosage: UNK
     Route: 065
     Dates: end: 20160901

REACTIONS (4)
  - Alopecia [Unknown]
  - Lower respiratory tract infection [Recovered/Resolved]
  - Contusion [Unknown]
  - Cough [Unknown]
